FAERS Safety Report 15218752 (Version 1)
Quarter: 2018Q3

REPORT INFORMATION
  Report Type: Report from Study
  Country: None (occurrence: BR)
  Receive Date: 20180731
  Receipt Date: 20180731
  Transmission Date: 20181010
  Serious: Yes (Other)
  Sender: FDA-Public Use
  Company Number: BR-ABBVIE-18K-020-2434602-00

PATIENT
  Age: 71 Year
  Sex: Female
  Weight: 58 kg

DRUGS (3)
  1. HUMIRA [Suspect]
     Active Substance: ADALIMUMAB
     Indication: RHEUMATOID ARTHRITIS
     Route: 058
     Dates: start: 20180406
  2. PARACETAMOL [Concomitant]
     Active Substance: ACETAMINOPHEN
     Indication: PRODUCT USED FOR UNKNOWN INDICATION
  3. LEXAPRO [Concomitant]
     Active Substance: ESCITALOPRAM OXALATE
     Indication: DEPRESSION

REACTIONS (19)
  - Dizziness [Not Recovered/Not Resolved]
  - Skin plaque [Recovered/Resolved]
  - Pruritus generalised [Not Recovered/Not Resolved]
  - Cough [Recovered/Resolved]
  - Dyspnoea [Recovering/Resolving]
  - Thrombophlebitis superficial [Recovering/Resolving]
  - Thrombosis [Unknown]
  - Gastrointestinal disorder [Recovering/Resolving]
  - Lymphadenopathy [Recovered/Resolved]
  - Hypersensitivity [Recovered/Resolved]
  - Peripheral swelling [Recovered/Resolved]
  - Head discomfort [Not Recovered/Not Resolved]
  - Limb discomfort [Unknown]
  - Generalised erythema [Recovered/Resolved]
  - Swelling [Unknown]
  - Weight decreased [Recovered/Resolved]
  - Pain in extremity [Unknown]
  - Abdominal discomfort [Unknown]
  - Joint swelling [Recovered/Resolved]

NARRATIVE: CASE EVENT DATE: 2018
